FAERS Safety Report 8494643-6 (Version None)
Quarter: 2012Q3

REPORT INFORMATION
  Report Type: 
  Country: None (occurrence: None)
  Receive Date: 20120709
  Receipt Date: 20120628
  Transmission Date: 20120928
  Serious: Yes (Hospitalization, Other)
  Sender: FDA-Public Use
  Company Number: BR-JNJFOC-20120700473

PATIENT
  Sex: Male
  Weight: 50 kg

DRUGS (4)
  1. WELLBUTRIN [Concomitant]
     Indication: FEELING OF RELAXATION
     Route: 048
     Dates: start: 20050101, end: 20120301
  2. MESALAMINE [Concomitant]
     Indication: CROHN'S DISEASE
     Route: 048
     Dates: start: 20020101
  3. REMICADE [Suspect]
     Indication: CROHN'S DISEASE
     Route: 042
     Dates: start: 20090101
  4. REMICADE [Suspect]
     Route: 042
     Dates: start: 20120224, end: 20120224

REACTIONS (3)
  - HAEMORRHAGE [None]
  - TOOTH EXTRACTION [None]
  - ANAEMIA [None]
